FAERS Safety Report 10073791 (Version 1)
Quarter: 2014Q2

REPORT INFORMATION
  Report Type: Report from Study
  Country: JP (occurrence: JP)
  Receive Date: 20140411
  Receipt Date: 20140411
  Transmission Date: 20141212
  Serious: Yes (Hospitalization, Other)
  Sender: FDA-Public Use
  Company Number: JP-GILEAD-2014-0098949

PATIENT
  Age: 66 Year
  Sex: Female
  Weight: 47 kg

DRUGS (9)
  1. AMBRISENTAN [Suspect]
     Indication: PULMONARY ARTERIAL HYPERTENSION
     Dosage: 5 MG, QD
     Route: 048
     Dates: start: 20121114
  2. AMBRISENTAN [Suspect]
     Dosage: 5 MG, QD
     Route: 048
     Dates: start: 20120822
  3. AMBRISENTAN [Suspect]
     Dosage: 2.5 MG, QD
     Route: 048
     Dates: start: 20120808, end: 20120821
  4. AMBRISENTAN [Suspect]
     Dosage: 7.5 MG, QD
     Route: 048
     Dates: start: 20120919
  5. REVATIO [Suspect]
     Indication: PULMONARY ARTERIAL HYPERTENSION
     Dosage: UNK
     Route: 048
  6. BERASUS [Concomitant]
     Indication: PULMONARY ARTERIAL HYPERTENSION
     Route: 048
  7. URSO                               /00465701/ [Concomitant]
     Route: 048
  8. JUVELA N [Concomitant]
     Route: 048
  9. LIPOVAS                            /00499301/ [Concomitant]
     Route: 048

REACTIONS (2)
  - Pulmonary oedema [Recovering/Resolving]
  - Breast cancer [Not Recovered/Not Resolved]
